FAERS Safety Report 8137888-7 (Version None)
Quarter: 2012Q1

REPORT INFORMATION
  Report Type: 
  Country: None (occurrence: None)
  Receive Date: 20120215
  Receipt Date: 20120209
  Transmission Date: 20120608
  Serious: Yes (Hospitalization, Other)
  Sender: FDA-Public Use
  Company Number: US-BAYER-2011-045883

PATIENT
  Age: 42 Year
  Sex: Female
  Weight: 126.98 kg

DRUGS (7)
  1. DROSPIRENONE AND ETHINYL ESTRADIOL [Suspect]
     Dosage: UNK
     Dates: start: 20090101, end: 20090601
  2. TYLENOL W/ CODEINE NO. 3 [Concomitant]
     Indication: HEADACHE
     Dosage: UNK UNK, BID
  3. TYLENOL W/ CODEINE NO. 3 [Concomitant]
     Indication: UNEVALUABLE EVENT
  4. TYLENOL W/ CODEINE NO. 3 [Concomitant]
     Indication: PAIN
  5. IBUPROFEN (ADVIL) [Concomitant]
     Indication: UNEVALUABLE EVENT
  6. IBUPROFEN (ADVIL) [Concomitant]
     Indication: HEADACHE
     Dosage: UNK UNK, BID
  7. YASMIN [Suspect]
     Dosage: UNK
     Dates: start: 20090101, end: 20090601

REACTIONS (12)
  - CEREBROVASCULAR ACCIDENT [None]
  - ANHEDONIA [None]
  - PULMONARY EMBOLISM [None]
  - PAIN [None]
  - DEEP VEIN THROMBOSIS [None]
  - INJURY [None]
  - ANXIETY [None]
  - MENTAL DISORDER [None]
  - THROMBOSIS [None]
  - MYOCARDIAL INFARCTION [None]
  - GALLBLADDER DISORDER [None]
  - FEAR [None]
